FAERS Safety Report 8983748 (Version 3)
Quarter: 2013Q1

REPORT INFORMATION
  Report Type: Spontaneous
  Country: JP (occurrence: JP)
  Receive Date: 20121224
  Receipt Date: 20130225
  Transmission Date: 20140127
  Serious: Yes (Death, Hospitalization, Other)
  Sender: FDA-Public Use
  Company Number: JP-ROCHE-1168074

PATIENT
  Age: 78 Year
  Sex: Female
  Weight: 51 kg

DRUGS (12)
  1. ACTEMRA [Suspect]
     Indication: RHEUMATOID ARTHRITIS
     Route: 041
     Dates: start: 20100415, end: 20111121
  2. ENDOXAN [Suspect]
     Indication: PRODUCT USED FOR UNKNOWN INDICATION
     Route: 042
     Dates: start: 20120605, end: 20120605
  3. ENDOXAN [Suspect]
     Route: 042
     Dates: start: 20120702, end: 20120702
  4. ENDOXAN [Suspect]
     Route: 042
     Dates: start: 20121105, end: 20121105
  5. AZULFIDINE-EN [Concomitant]
     Route: 065
     Dates: start: 20100204
  6. RHEUMATREX [Concomitant]
     Dosage: 4 - 12 MG/W
     Route: 065
     Dates: start: 20100204
  7. NORVASC [Concomitant]
     Route: 048
     Dates: start: 20110606, end: 20120921
  8. PARIET [Concomitant]
     Route: 048
     Dates: start: 20101118, end: 20120921
  9. EPADEL [Concomitant]
     Route: 048
     Dates: start: 20111222, end: 20120921
  10. ALFAROL [Concomitant]
     Route: 048
     Dates: start: 20111110, end: 20120921
  11. ASPARA-CA [Concomitant]
     Route: 048
     Dates: start: 20111110, end: 20120921
  12. PREDNISOLONE [Concomitant]
     Route: 048
     Dates: start: 20120606, end: 20120921

REACTIONS (8)
  - Death [Fatal]
  - Alveolitis allergic [Fatal]
  - Multi-organ failure [Fatal]
  - Infection [Fatal]
  - Sepsis [Fatal]
  - Disseminated intravascular coagulation [Fatal]
  - Cell marker increased [Recovering/Resolving]
  - Interstitial lung disease [Unknown]
